FAERS Safety Report 4692955-5 (Version None)
Quarter: 2005Q2

REPORT INFORMATION
  Report Type: 
  Country: None (occurrence: None)
  Receive Date: 20050615
  Receipt Date: 20050606
  Transmission Date: 20051028
  Serious: Yes (Other)
  Sender: FDA-Public Use
  Company Number: 2005085706

PATIENT
  Sex: Male
  Weight: 71.6683 kg

DRUGS (7)
  1. NITROSTAT [Suspect]
     Indication: PROPHYLAXIS
     Dosage: 0.3 MG PRN SUBLINGUAL
     Route: 060
     Dates: start: 19830101
  2. COZAAR [Concomitant]
  3. CORDARONE [Concomitant]
  4. TOPROL-XL [Concomitant]
  5. FUROSEMIDE [Concomitant]
  6. POTASSIUM CHLORIDE [Concomitant]
  7. ZANTAC [Concomitant]

REACTIONS (3)
  - ANAEMIA [None]
  - DRUG EFFECT DECREASED [None]
  - PHARMACEUTICAL PRODUCT COMPLAINT [None]
